FAERS Safety Report 6637276-6 (Version None)
Quarter: 2010Q1

REPORT INFORMATION
  Report Type: 
  Country: None (occurrence: None)
  Receive Date: 20100316
  Receipt Date: 20100125
  Transmission Date: 20100710
  Serious: Yes (Other)
  Sender: FDA-Public Use
  Company Number: US-ABBOTT-10P-163-0621819-00

PATIENT
  Sex: Female
  Weight: 90.8 kg

DRUGS (5)
  1. TRILIPIX [Suspect]
     Indication: BLOOD TRIGLYCERIDES INCREASED
     Dates: start: 20000701
  2. CRESTOR [Concomitant]
     Indication: BLOOD CHOLESTEROL INCREASED
  3. SYNTHROID [Concomitant]
     Indication: HYPOTHYROIDISM
  4. COUMADIN [Concomitant]
     Indication: ATRIAL FIBRILLATION
     Dates: start: 20100101
  5. TYLENOL W/ CODEINE NO. 3 [Concomitant]
     Indication: PAIN

REACTIONS (3)
  - ABDOMINAL DISCOMFORT [None]
  - ATRIAL FIBRILLATION [None]
  - CHEST PAIN [None]
